FAERS Safety Report 8218465-6 (Version None)
Quarter: 2012Q1

REPORT INFORMATION
  Report Type: 
  Country: None (occurrence: None)
  Receive Date: 20120319
  Receipt Date: 20120306
  Transmission Date: 20120608
  Serious: Yes (Life-Threatening, Hospitalization)
  Sender: FDA-Public Use
  Company Number: US-ELI_LILLY_AND_COMPANY-US201203001995

PATIENT
  Age: 47 Year
  Sex: Female

DRUGS (3)
  1. FORTEO [Suspect]
     Indication: OSTEOPOROSIS
     Dosage: 20 UG, QD
     Route: 065
     Dates: start: 20111017
  2. SYNTHROID [Concomitant]
  3. PREMARIN [Concomitant]
     Dosage: 0.9 MG, UNK

REACTIONS (6)
  - CARDIAC ARREST [None]
  - DIZZINESS [None]
  - CHEST PAIN [None]
  - HEART RATE INCREASED [None]
  - CORONARY ARTERY OCCLUSION [None]
  - MYOCARDIAL INFARCTION [None]
